FAERS Safety Report 24982875 (Version 2)
Quarter: 2025Q2

REPORT INFORMATION
  Report Type: Spontaneous
  Country: US (occurrence: US)
  Receive Date: 20250218
  Receipt Date: 20250410
  Transmission Date: 20250716
  Serious: Yes (Hospitalization, Other)
  Sender: PFIZER
  Company Number: US-PFIZER INC-202500035896

PATIENT
  Age: 62 Year
  Sex: Female

DRUGS (12)
  1. TUKYSA [Suspect]
     Active Substance: TUCATINIB
     Indication: Breast cancer metastatic
     Dates: start: 20231207
  2. TUKYSA [Suspect]
     Active Substance: TUCATINIB
     Dosage: 250 MG, 2X/DAY
     Dates: start: 202404
  3. TUKYSA [Suspect]
     Active Substance: TUCATINIB
     Dosage: TAKE 1 50MG TABLET BY MOUTH 2X PER DAY, TAKE 1 150MG TABLET BY MOUTH 2X PER DAY
     Route: 048
     Dates: start: 202405
  4. TRASTUZUMAB [Suspect]
     Active Substance: TRASTUZUMAB
     Indication: Breast cancer metastatic
     Dates: start: 20230309
  5. TRASTUZUMAB [Suspect]
     Active Substance: TRASTUZUMAB
     Dates: start: 20230316
  6. TRASTUZUMAB [Suspect]
     Active Substance: TRASTUZUMAB
     Dates: start: 20231207
  7. TRASTUZUMAB [Suspect]
     Active Substance: TRASTUZUMAB
     Route: 042
     Dates: start: 20250214
  8. LETROZOLE [Suspect]
     Active Substance: LETROZOLE
     Indication: Breast cancer metastatic
     Dosage: 2.5 MG, DAILY
     Dates: start: 20230426
  9. XELODA [Suspect]
     Active Substance: CAPECITABINE
     Indication: Breast cancer metastatic
     Dates: start: 20231207
  10. XELODA [Suspect]
     Active Substance: CAPECITABINE
     Dosage: 1500 MG, 2X/DAY
  11. XELODA [Suspect]
     Active Substance: CAPECITABINE
     Dosage: 1000 MG, 2X/DAY
     Dates: start: 20240118
  12. XELODA [Suspect]
     Active Substance: CAPECITABINE
     Dosage: 800 MG, 2X/DAY
     Dates: start: 202406

REACTIONS (10)
  - Hypokalaemia [Unknown]
  - Diarrhoea [Recovered/Resolved]
  - Dermatitis [Recovered/Resolved]
  - COVID-19 [Unknown]
  - Pain in extremity [Not Recovered/Not Resolved]
  - Skin fissures [Not Recovered/Not Resolved]
  - Dry skin [Not Recovered/Not Resolved]
  - Palmar-plantar erythrodysaesthesia syndrome [Unknown]
  - Arthralgia [Unknown]
  - Myalgia [Unknown]

NARRATIVE: CASE EVENT DATE: 20231201
